FAERS Safety Report 20746223 (Version 1)
Quarter: 2022Q2

REPORT INFORMATION
  Report Type: Report from Study
  Country: US (occurrence: US)
  Receive Date: 20220425
  Receipt Date: 20220425
  Transmission Date: 20220720
  Serious: No
  Sender: FDA-Public Use
  Company Number: US-MIRM-000366

PATIENT
  Sex: Female

DRUGS (2)
  1. LIVMARLI [Suspect]
     Active Substance: MARALIXIBAT CHLORIDE
     Indication: Product used for unknown indication
  2. 1776251 (GLOBALC3Sep19): Vitamin D [Concomitant]
     Indication: Product used for unknown indication

REACTIONS (6)
  - Faeces pale [Unknown]
  - Nasopharyngitis [Unknown]
  - Malaise [Unknown]
  - Haematochezia [Unknown]
  - Pruritus [Unknown]
  - Incorrect dose administered [Unknown]
